FAERS Safety Report 14190872 (Version 1)
Quarter: 2017Q4

REPORT INFORMATION
  Report Type: Spontaneous
  Country: US (occurrence: US)
  Receive Date: 20171115
  Receipt Date: 20171115
  Transmission Date: 20180321
  Serious: Yes (Other)
  Sender: FDA-Public Use
  Company Number: US-PFIZER INC-2017483441

PATIENT
  Age: 13 Year
  Sex: Male

DRUGS (2)
  1. ZOLOFT [Suspect]
     Active Substance: SERTRALINE HYDROCHLORIDE
     Indication: DEPRESSION
  2. ZOLOFT [Suspect]
     Active Substance: SERTRALINE HYDROCHLORIDE
     Indication: SOCIAL ANXIETY DISORDER
     Dosage: UNK

REACTIONS (9)
  - Suicidal ideation [Unknown]
  - Condition aggravated [Unknown]
  - Insomnia [Unknown]
  - Product use issue [Unknown]
  - Depression [Unknown]
  - Ocular hyperaemia [Unknown]
  - Crying [Unknown]
  - Suicide attempt [Unknown]
  - Abnormal behaviour [Unknown]
